FAERS Safety Report 8451001-8 (Version None)
Quarter: 2012Q2

REPORT INFORMATION
  Report Type: 
  Country: None (occurrence: None)
  Receive Date: 20120620
  Receipt Date: 20120619
  Transmission Date: 20120825
  Serious: Yes (Hospitalization)
  Sender: FDA-Public Use
  Company Number: US-ROCHE-1034414

PATIENT
  Sex: Female
  Weight: 64.922 kg

DRUGS (7)
  1. AZITHROMYCIN [Concomitant]
  2. ZELBORAF [Suspect]
     Indication: METASTATIC MALIGNANT MELANOMA
     Dosage: TWO 240 MG TABS
  3. AMIODARONE HYDROCHLORIDE [Concomitant]
  4. CELEXA [Concomitant]
  5. PREDNISONE TAB [Concomitant]
     Dosage: EVERY OTHER DAY
  6. ELAVIL [Concomitant]
  7. XANAX [Concomitant]
     Dosage: SPARINGLY

REACTIONS (15)
  - ANAEMIA [None]
  - MYOCARDIAL ISCHAEMIA [None]
  - FLUSHING [None]
  - LOCAL SWELLING [None]
  - DECREASED APPETITE [None]
  - VOMITING [None]
  - AGEUSIA [None]
  - MYOCARDIAL INFARCTION [None]
  - HYPERTENSION [None]
  - EYE IRRITATION [None]
  - ARTHRALGIA [None]
  - MASS [None]
  - FATIGUE [None]
  - HYPERCHOLESTEROLAEMIA [None]
  - PRURITUS [None]
